FAERS Safety Report 8924700 (Version 1)
Quarter: 2012Q4

REPORT INFORMATION
  Report Type: 
  Country: GB (occurrence: GB)
  Receive Date: 20121126
  Receipt Date: 20121126
  Transmission Date: 20130627
  Serious: Yes (Hospitalization, Other)
  Sender: FDA-Public Use
  Company Number: GB-PFIZER INC-2012294020

PATIENT
  Age: 57 Year
  Sex: Female
  Weight: 63 kg

DRUGS (11)
  1. GENOTROPIN [Suspect]
     Dosage: 0.8 mg, 1x/day. 7 injection/week
     Route: 058
     Dates: start: 20010913
  2. DESMOPRESSIN [Concomitant]
     Indication: ADH DECREASED
     Dosage: UNK
     Dates: start: 19920813
  3. LEVOTHYROXINE [Concomitant]
     Indication: TSH DECREASE
     Dosage: UNK
     Dates: start: 19951220
  4. LEVOTHYROXINE [Concomitant]
     Indication: PRIMARY HYPOTHYROIDISM
  5. HYDROCORTISONE [Concomitant]
     Indication: ACTH DECREASED
     Dosage: UNK
     Dates: start: 19951220
  6. INSULIN [Concomitant]
     Indication: DIABETES MELLITUS
     Dosage: UNK
     Dates: start: 19951221
  7. INSULIN [Concomitant]
     Indication: INSULIN-DEPENDENT DIABETES MELLITUS
  8. INSULIN [Concomitant]
     Indication: NIDDM
  9. ESTRADIOL [Concomitant]
     Indication: FOLLICLE-STIMULATING HORMONE DEFICIENCY
     Dosage: UNK
     Dates: start: 19981030
  10. ESTRADIOL [Concomitant]
     Indication: LUTEINISING HORMONE DEFICIENCY
  11. ESTRADIOL [Concomitant]
     Indication: HYPOGONADISM FEMALE

REACTIONS (1)
  - Diabetic coma [Unknown]
